FAERS Safety Report 26048687 (Version 1)
Quarter: 2025Q4

REPORT INFORMATION
  Report Type: Spontaneous
  Country: US (occurrence: US)
  Receive Date: 20251115
  Receipt Date: 20251115
  Transmission Date: 20260118
  Serious: No
  Sender: Apozeal Pharmaceuticals
  Company Number: US-Apozeal Pharmaceuticals-2188598

PATIENT

DRUGS (3)
  1. HYDROXYZINE HYDROCHLORIDE [Suspect]
     Active Substance: HYDROXYZINE HYDROCHLORIDE
     Indication: Product used for unknown indication
  2. TRAZODONE [Concomitant]
     Active Substance: TRAZODONE HYDROCHLORIDE
  3. PROGESTERONE [Concomitant]
     Active Substance: PROGESTERONE

REACTIONS (1)
  - Feeling abnormal [Unknown]
